FAERS Safety Report 7870907-1 (Version None)
Quarter: 2011Q4

REPORT INFORMATION
  Report Type: 
  Country: None (occurrence: None)
  Receive Date: 20111029
  Receipt Date: 20110221
  Transmission Date: 20120403
  Serious: No
  Sender: FDA-Public Use
  Company Number: US-AMGEN-USASP2011007305

PATIENT
  Age: 36 Year
  Sex: Female
  Weight: 78.912 kg

DRUGS (2)
  1. ENBREL [Suspect]
     Indication: PSORIASIS
  2. ENBREL [Suspect]
     Indication: PSORIATIC ARTHROPATHY
     Dosage: 50 MG, 2 TIMES/WK
     Dates: start: 20110103

REACTIONS (4)
  - INJECTION SITE ERYTHEMA [None]
  - ANXIETY [None]
  - STRESS [None]
  - INJECTION SITE HAEMATOMA [None]
